FAERS Safety Report 8790530 (Version 1)
Quarter: 2012Q4

REPORT INFORMATION
  Report Type: Spontaneous
  Country: US (occurrence: None)
  Receive Date: 20120912
  Receipt Date: 20120912
  Transmission Date: 20130627
  Serious: No
  Sender: FDA-Public Use
  Company Number: None

PATIENT
  Age: 58 Year
  Sex: Female
  Weight: 45.36 kg

DRUGS (1)
  1. IBUPROFEN [Suspect]
     Indication: BACK SPRAIN
     Dosage: 1  2x day po
     Route: 048
     Dates: start: 20120910, end: 20120911

REACTIONS (4)
  - Somnolence [None]
  - Dizziness [None]
  - Palpitations [None]
  - Headache [None]
